FAERS Safety Report 20833489 (Version 1)
Quarter: 2022Q2

REPORT INFORMATION
  Report Type: Spontaneous
  Country: US (occurrence: None)
  Receive Date: 20220515
  Receipt Date: 20220515
  Transmission Date: 20220721
  Serious: Yes (Other)
  Sender: FDA-Public Use
  Company Number: None

PATIENT
  Age: 74 Year
  Sex: Male
  Weight: 101.25 kg

DRUGS (3)
  1. BRILINTA [Suspect]
     Active Substance: TICAGRELOR
     Indication: Coronary arterial stent insertion
  2. LOW DOSE ASPIRIN [Suspect]
     Active Substance: ASPIRIN
  3. WARFARIN [Suspect]
     Active Substance: WARFARIN

REACTIONS (2)
  - Haemorrhage [None]
  - Contusion [None]

NARRATIVE: CASE EVENT DATE: 20220401
